FAERS Safety Report 5528103-9 (Version None)
Quarter: 2007Q4

REPORT INFORMATION
  Report Type: 
  Country: None (occurrence: None)
  Receive Date: 20071128
  Receipt Date: 20071114
  Transmission Date: 20080405
  Serious: Yes (Other)
  Sender: FDA-Public Use
  Company Number: GB-RANBAXY-2007RR-11491

PATIENT

DRUGS (2)
  1. IBUPROFEN TABLETS BP 400MG [Suspect]
     Indication: PAIN
     Dosage: 400 MG, UNK
     Route: 048
     Dates: start: 20070915, end: 20070923
  2. ACETAMINOPHEN [Concomitant]
     Indication: PAIN
     Dosage: 1 G, UNK
     Route: 048
     Dates: start: 20070915

REACTIONS (1)
  - PANCREATITIS [None]
